FAERS Safety Report 13974470 (Version 4)
Quarter: 2019Q1

REPORT INFORMATION
  Report Type: Spontaneous
  Country: CZ (occurrence: CZ)
  Receive Date: 20170915
  Receipt Date: 20190306
  Transmission Date: 20190417
  Serious: Yes (Disabling)
  Sender: FDA-Public Use
  Company Number: CZ-ROCHE-1766541

PATIENT
  Sex: Female

DRUGS (1)
  1. AVASTIN [Suspect]
     Active Substance: BEVACIZUMAB
     Indication: MACULAR DEGENERATION
     Route: 031
     Dates: start: 201508

REACTIONS (8)
  - Off label use [Unknown]
  - Photophobia [Not Recovered/Not Resolved]
  - Intentional product misuse [Unknown]
  - Suspected transmission of an infectious agent via product [Unknown]
  - Eye infection [Recovered/Resolved]
  - Intentional product use issue [Unknown]
  - Visual acuity reduced [Not Recovered/Not Resolved]
  - Vitreous floaters [Unknown]

NARRATIVE: CASE EVENT DATE: 201508
